FAERS Safety Report 8044136-5 (Version None)
Quarter: 2012Q1

REPORT INFORMATION
  Report Type: 
  Country: None (occurrence: None)
  Receive Date: 20120113
  Receipt Date: 20120109
  Transmission Date: 20120608
  Serious: No
  Sender: FDA-Public Use
  Company Number: PHEH2012US001127

PATIENT
  Sex: Male

DRUGS (11)
  1. TASIGNA [Suspect]
     Indication: CHRONIC MYELOID LEUKAEMIA
     Dosage: 400 MG, Q12H
     Route: 048
     Dates: start: 20100309
  2. CARVEDILOL [Concomitant]
     Dosage: UNK UKN, UNK
  3. GLIMEPIRIDE [Concomitant]
     Dosage: UNK UKN, UNK
  4. PREDNISONE [Concomitant]
     Dosage: UNK UKN, UNK
  5. VITAMIN B6 [Concomitant]
     Dosage: UNK UKN, UNK
  6. FUROSEMIDE [Concomitant]
     Dosage: UNK UKN, UNK
  7. ALIGN [Concomitant]
     Dosage: UNK UKN, UNK
  8. AMLODIPINE BESYLATE [Concomitant]
     Dosage: UNK UKN, UNK
  9. METOPROLOL SUCCINATE [Concomitant]
     Dosage: UNK UKN, UNK
  10. AVAPRO [Concomitant]
     Dosage: UNK UKN, UNK
  11. CIALIS [Concomitant]
     Dosage: UNK UKN, UNK

REACTIONS (3)
  - INFECTION [None]
  - FUNGAL SKIN INFECTION [None]
  - SKIN INFECTION [None]
